FAERS Safety Report 8168510-1 (Version None)
Quarter: 2012Q1

REPORT INFORMATION
  Report Type: 
  Country: None (occurrence: None)
  Receive Date: 20120227
  Receipt Date: 20120227
  Transmission Date: 20120608
  Serious: No
  Sender: FDA-Public Use
  Company Number: None

PATIENT
  Age: 80 Year
  Sex: Male
  Weight: 108.86 kg

DRUGS (1)
  1. PRISTIQ [Suspect]
     Indication: DEPRESSION
     Dosage: 1 TABLET DAILY IN THE MORNING
     Route: 048
     Dates: start: 20110401, end: 20120201

REACTIONS (2)
  - TARDIVE DYSKINESIA [None]
  - MOVEMENT DISORDER [None]
